FAERS Safety Report 25142106 (Version 1)
Quarter: 2025Q1

REPORT INFORMATION
  Report Type: Spontaneous
  Country: US (occurrence: US)
  Receive Date: 20250331
  Receipt Date: 20250331
  Transmission Date: 20250408
  Serious: No
  Sender: PFIZER
  Company Number: US-PFIZER INC-202500067313

PATIENT
  Age: 71 Year
  Sex: Female

DRUGS (3)
  1. IBRANCE [Suspect]
     Active Substance: PALBOCICLIB
     Route: 048
     Dates: start: 20240806
  2. ELIQUIS [Concomitant]
     Active Substance: APIXABAN
  3. LETROZOLE [Concomitant]
     Active Substance: LETROZOLE

REACTIONS (2)
  - Myalgia [Unknown]
  - Arthralgia [Unknown]
